FAERS Safety Report 18359204 (Version 1)
Quarter: 2020Q4

REPORT INFORMATION
  Report Type: Spontaneous
  Country: US (occurrence: US)
  Receive Date: 20201008
  Receipt Date: 20201008
  Transmission Date: 20210114
  Serious: No
  Sender: FDA-Public Use
  Company Number: US-INDIVIOR US-INDV-123959-2020

PATIENT
  Sex: Male

DRUGS (2)
  1. SUBOXONE [Suspect]
     Active Substance: BUPRENORPHINE HYDROCHLORIDE\NALOXONE HYDROCHLORIDE
     Indication: DEPENDENCE
     Dosage: 8 MILLIGRAM, QID
     Route: 060
     Dates: start: 2004, end: 2009
  2. SUBOXONE [Suspect]
     Active Substance: BUPRENORPHINE HYDROCHLORIDE\NALOXONE HYDROCHLORIDE
     Indication: DRUG DEPENDENCE
     Dosage: 8 MILLIGRAM, QID
     Route: 060
     Dates: start: 2009, end: 2014

REACTIONS (6)
  - Drug dependence [Not Recovered/Not Resolved]
  - Tooth loss [Recovered/Resolved]
  - Dental caries [Recovered/Resolved]
  - Inappropriate schedule of product administration [Recovered/Resolved]
  - Drug dependence [Recovered/Resolved]
  - Prescribed overdose [Recovered/Resolved]

NARRATIVE: CASE EVENT DATE: 2004
